FAERS Safety Report 4587050-X (Version None)
Quarter: 2005Q1

REPORT INFORMATION
  Report Type: 
  Country: None (occurrence: None)
  Receive Date: 20050218
  Receipt Date: 20050211
  Transmission Date: 20050727
  Serious: Yes (Other)
  Sender: FDA-Public Use
  Company Number: PHFR2005GB00874

PATIENT
  Age: 30 Year
  Sex: Female

DRUGS (3)
  1. PROPRANOLOL [Concomitant]
     Indication: ANXIETY
     Dosage: 10 MG, TID
     Route: 048
     Dates: start: 20041216, end: 20050101
  2. AMOXICILLIN [Concomitant]
     Indication: LOWER RESPIRATORY TRACT INFECTION
     Dosage: 500 MG, TID
     Route: 048
     Dates: start: 20041115
  3. DICLOFENAC [Suspect]
     Indication: BACK PAIN
     Dosage: 50 MG, TID
     Route: 048
     Dates: start: 20050124, end: 20050128

REACTIONS (2)
  - RASH MACULAR [None]
  - WHEEZING [None]
